FAERS Safety Report 9909720 (Version 1)
Quarter: 2014Q1

REPORT INFORMATION
  Report Type: Spontaneous
  Country: IT (occurrence: IT)
  Receive Date: 20140219
  Receipt Date: 20140219
  Transmission Date: 20141002
  Serious: Yes (Other)
  Sender: FDA-Public Use
  Company Number: IT-WATSON-2014-02453

PATIENT
  Age: 32 Year
  Sex: Male

DRUGS (4)
  1. PREGABALIN (UNKNOWN) [Suspect]
     Indication: NEURALGIA
     Dosage: 4500 MG, DAILY
     Route: 048
  2. PREGABALIN (UNKNOWN) [Suspect]
     Dosage: 300 MG, BID
     Route: 048
  3. PREGABALIN (UNKNOWN) [Suspect]
     Dosage: 150 MG, BID
     Route: 048
  4. PREGABALIN (UNKNOWN) [Suspect]
     Dosage: 75 MG, BID
     Route: 048

REACTIONS (6)
  - Drug withdrawal syndrome [Unknown]
  - Anxiety [Unknown]
  - Irritability [Unknown]
  - Aggression [Unknown]
  - Intentional drug misuse [Unknown]
  - Overdose [Unknown]
